FAERS Safety Report 9450007 (Version 1)
Quarter: 2013Q3

REPORT INFORMATION
  Report Type: Spontaneous
  Country: CO (occurrence: CO)
  Receive Date: 20130809
  Receipt Date: 20130809
  Transmission Date: 20140515
  Serious: Yes (Death, Hospitalization, Other)
  Sender: FDA-Public Use
  Company Number: CO-PFIZER INC-2013229141

PATIENT
  Age: 70 Year
  Sex: Male

DRUGS (1)
  1. SUTENT [Suspect]
     Indication: RENAL CANCER
     Dosage: 50 MG, 1X/DAY
     Route: 048
     Dates: start: 200911, end: 201203

REACTIONS (11)
  - Disease progression [Fatal]
  - Renal cancer [Fatal]
  - Gallbladder disorder [Unknown]
  - Pain in extremity [Not Recovered/Not Resolved]
  - Monoplegia [Unknown]
  - Visual impairment [Unknown]
  - Aphasia [Unknown]
  - Loss of consciousness [Unknown]
  - Cancer pain [Recovering/Resolving]
  - Abnormal faeces [Unknown]
  - Urine odour abnormal [Unknown]
